FAERS Safety Report 18969029 (Version 4)
Quarter: 2021Q2

REPORT INFORMATION
  Report Type: Report from Study
  Country: US (occurrence: US)
  Receive Date: 20210304
  Receipt Date: 20210413
  Transmission Date: 20210717
  Serious: Yes (Other)
  Sender: FDA-Public Use
  Company Number: NVSC2021US045570

PATIENT
  Sex: Male

DRUGS (1)
  1. ENTRESTO [Suspect]
     Active Substance: SACUBITRIL\VALSARTAN
     Indication: PRODUCT USED FOR UNKNOWN INDICATION
     Dosage: 50 MG, BID (24/26 MG)
     Route: 048
     Dates: start: 20201016

REACTIONS (7)
  - Cardiac failure [Unknown]
  - Cardiac disorder [Unknown]
  - Somnolence [Unknown]
  - Feeling abnormal [Unknown]
  - Hypotension [Unknown]
  - Asthma [Unknown]
  - Product supply issue [Unknown]
